FAERS Safety Report 9542377 (Version 1)
Quarter: 2013Q3

REPORT INFORMATION
  Report Type: Spontaneous
  Country: US (occurrence: US)
  Receive Date: 20130923
  Receipt Date: 20130923
  Transmission Date: 20140515
  Serious: No
  Sender: FDA-Public Use
  Company Number: US-BAYER-2013-114525

PATIENT
  Age: 68 Year
  Sex: Female
  Weight: 66.67 kg

DRUGS (3)
  1. ALEVE CAPLET [Suspect]
     Indication: BACK PAIN
     Dosage: 1 DF, BID
     Route: 048
     Dates: start: 2013, end: 20130918
  2. INSULIN [INSULIN] [Concomitant]
  3. METFORMIN [Concomitant]

REACTIONS (2)
  - Blood disorder [Not Recovered/Not Resolved]
  - Incorrect drug administration duration [None]
